FAERS Safety Report 17262942 (Version 1)
Quarter: 2020Q1

REPORT INFORMATION
  Report Type: Spontaneous
  Country: US (occurrence: US)
  Receive Date: 20200110
  Receipt Date: 20200110
  Transmission Date: 20200409
  Serious: Yes (Hospitalization)
  Sender: FDA-Public Use
  Company Number: None

PATIENT
  Age: 19 Year
  Sex: Male

DRUGS (6)
  1. BANZEL [Concomitant]
     Active Substance: RUFINAMIDE
  2. OTREXUP [Suspect]
     Active Substance: METHOTREXATE
     Indication: CROHN^S DISEASE
     Dosage: ?          OTHER FREQUENCY:EVERY WEEK;?
     Route: 058
     Dates: start: 20191118
  3. LAMOTRIGINE. [Concomitant]
     Active Substance: LAMOTRIGINE
  4. SOD CHLORIDE [Concomitant]
  5. GLYCOPYRROL [Concomitant]
  6. LEUCOVOR CA [Concomitant]

REACTIONS (1)
  - Hospitalisation [None]
